FAERS Safety Report 13105560 (Version 1)
Quarter: 2017Q1

REPORT INFORMATION
  Report Type: Spontaneous
  Country: US (occurrence: US)
  Receive Date: 20170111
  Receipt Date: 20170111
  Transmission Date: 20170428
  Serious: Yes (Death, Life-Threatening, Other)
  Sender: FDA-Public Use
  Company Number: US-EPIC PHARMA LLC-2016EPC00029

PATIENT
  Age: 53 Year
  Sex: Male

DRUGS (1)
  1. AMLODIPINE [Suspect]
     Active Substance: AMLODIPINE BESYLATE
     Dosage: 800 MG, ONCE (80 X 10 MG TABLETS)
     Route: 048

REACTIONS (5)
  - Overdose [Fatal]
  - Hypotension [Not Recovered/Not Resolved]
  - Unresponsive to stimuli [Not Recovered/Not Resolved]
  - Mental status changes [Not Recovered/Not Resolved]
  - Brain injury [Fatal]
